FAERS Safety Report 6389578-9 (Version None)
Quarter: 2009Q4

REPORT INFORMATION
  Report Type: 
  Country: None (occurrence: None)
  Receive Date: 20091003
  Receipt Date: 20090917
  Transmission Date: 20100525
  Serious: Yes (Hospitalization)
  Sender: FDA-Public Use
  Company Number: JS-JNJFOC-20090906091

PATIENT
  Age: 77 Year
  Sex: Male
  Weight: 74.8435 kg

DRUGS (13)
  1. DECITABINE (DECITABINE) LYOPHILIZED POWDER [Suspect]
     Indication: ACUTE MYELOID LEUKAEMIA
     Dosage: 14 CYCLES IN TOTAL; INTRAVENOUS
     Route: 042
     Dates: start: 20080301
  2. VELCADE [Suspect]
     Indication: ACUTE MYELOID LEUKAEMIA
     Dates: start: 20090501, end: 20090701
  3. VIDAZA [Suspect]
     Indication: ACUTE MYELOID LEUKAEMIA
     Dates: start: 20090501, end: 20090701
  4. MYLOTARG [Suspect]
     Indication: ACUTE MYELOID LEUKAEMIA
     Dosage: INTRAVENOUS
     Route: 042
     Dates: start: 20090820
  5. FAMOTIDINE (FAMOTIDINE) TABLET [Concomitant]
  6. FUROSEMIDE (FUROSEMIDE) TABLETS [Concomitant]
  7. METOPROLOL TARTRATE [Concomitant]
  8. VALACYCLOVIR (VALACICLOVIR) TABLET [Concomitant]
  9. LEVOFLOXACIN [Concomitant]
  10. ONDANSETRON (ONDANSETRON) TABLET [Concomitant]
  11. LOSARTAN (LOSARTAN) TABLET [Concomitant]
  12. SIMVASTATIN [Concomitant]
  13. MULTIVITAMIN TABLET (MULTIVITAMINS) TABLET [Concomitant]

REACTIONS (12)
  - ALPHA HAEMOLYTIC STREPTOCOCCAL INFECTION [None]
  - BACTERAEMIA [None]
  - BACTERIAL INFECTION [None]
  - CARDIOMEGALY [None]
  - DIARRHOEA [None]
  - FALL [None]
  - FEBRILE NEUTROPENIA [None]
  - GAIT DISTURBANCE [None]
  - NAUSEA [None]
  - RECTAL HAEMORRHAGE [None]
  - TUMOUR LYSIS SYNDROME [None]
  - VOMITING [None]
